FAERS Safety Report 4682825-0 (Version None)
Quarter: 2005Q2

REPORT INFORMATION
  Report Type: 
  Country: None (occurrence: None)
  Receive Date: 20050606
  Receipt Date: 20050525
  Transmission Date: 20051028
  Serious: Yes (Hospitalization)
  Sender: FDA-Public Use
  Company Number: 2005UW08550

PATIENT
  Age: 172 Month
  Sex: Female

DRUGS (2)
  1. IRESSA [Suspect]
     Indication: LUNG NEOPLASM MALIGNANT
     Route: 048
     Dates: start: 20050426, end: 20050501
  2. IRINOTECAN [Suspect]
     Indication: LUNG NEOPLASM MALIGNANT
     Dates: start: 20050426

REACTIONS (6)
  - DYSPNOEA [None]
  - HYPOALBUMINAEMIA [None]
  - HYPOKALAEMIA [None]
  - PAIN [None]
  - PYREXIA [None]
  - URINARY RETENTION [None]
